FAERS Safety Report 7540825-7 (Version None)
Quarter: 2011Q2

REPORT INFORMATION
  Report Type: 
  Country: None (occurrence: None)
  Receive Date: 20110610
  Receipt Date: 20110531
  Transmission Date: 20111010
  Serious: Yes (Hospitalization)
  Sender: FDA-Public Use
  Company Number: US-JNJFOC-20110603328

PATIENT
  Sex: Female
  Weight: 72.58 kg

DRUGS (33)
  1. CITALOPRAM HYDROBROMIDE [Concomitant]
  2. XOPENEX [Concomitant]
  3. ISOSORBIDE MONONITRATE [Concomitant]
  4. NIACIN [Concomitant]
  5. ASPIRIN [Suspect]
     Indication: ACUTE CORONARY SYNDROME
     Route: 048
     Dates: start: 20100720, end: 20110318
  6. ATACAND [Concomitant]
  7. ALBUTEROL SULFATE AUTOHALER [Concomitant]
  8. PLACEBO [Suspect]
     Route: 048
     Dates: start: 20090904, end: 20090904
  9. PLACEBO [Suspect]
     Route: 048
     Dates: start: 20090905, end: 20110317
  10. ADVAIR DISKUS 100/50 [Concomitant]
  11. BECLOMETHASONE DIPROPIONATE [Concomitant]
  12. TRAZODONE HCL [Concomitant]
  13. RIVAROXABAN [Suspect]
     Route: 048
     Dates: start: 20090904, end: 20090904
  14. PLACEBO [Suspect]
     Indication: ACUTE CORONARY SYNDROME
     Route: 048
     Dates: start: 20090905, end: 20110317
  15. PLACEBO [Suspect]
     Route: 048
     Dates: start: 20090904, end: 20090904
  16. CRESTOR [Concomitant]
  17. SIMVASTATIN [Concomitant]
  18. AMLODIPINE [Concomitant]
  19. GUAIFENESIN [Concomitant]
  20. VALIUM [Concomitant]
  21. RIVAROXABAN [Suspect]
     Route: 048
     Dates: start: 20090905, end: 20110317
  22. CLOPIDOGREL [Suspect]
     Indication: ACUTE CORONARY SYNDROME
     Route: 048
     Dates: start: 20090904, end: 20110318
  23. INFLUENZA VACCINE [Concomitant]
  24. BENADRYL [Concomitant]
  25. METOPROLOL [Concomitant]
  26. LISINOPRIL [Concomitant]
  27. BUSPAR [Concomitant]
  28. DALTEPARIN SODIUM [Concomitant]
  29. RIVAROXABAN [Suspect]
     Indication: ACUTE CORONARY SYNDROME
     Route: 048
     Dates: start: 20090905, end: 20110317
  30. RIVAROXABAN [Suspect]
     Route: 048
     Dates: start: 20090904, end: 20090904
  31. PEPCID [Concomitant]
  32. MORPHINE [Concomitant]
  33. CARVEDILOL [Concomitant]

REACTIONS (1)
  - PERITONEAL HAEMORRHAGE [None]
